FAERS Safety Report 12433951 (Version 5)
Quarter: 2018Q4

REPORT INFORMATION
  Report Type: Spontaneous
  Country: US (occurrence: US)
  Receive Date: 20160603
  Receipt Date: 20181211
  Transmission Date: 20190204
  Serious: Yes (Hospitalization)
  Sender: FDA-Public Use
  Company Number: US-DSJP-DSU-2015-121288

PATIENT

DRUGS (3)
  1. BENICAR [Suspect]
     Active Substance: OLMESARTAN MEDOXOMIL
     Dosage: 40 MG, QD
     Route: 048
     Dates: start: 20070719, end: 2014
  2. TYLENOL [Concomitant]
     Active Substance: ACETAMINOPHEN
     Indication: PRODUCT USED FOR UNKNOWN INDICATION
     Dosage: 500 MG, AS NEEDED
     Route: 048
  3. BENICAR [Suspect]
     Active Substance: OLMESARTAN MEDOXOMIL
     Indication: HYPERTENSION
     Dosage: 5 MG, UNK
     Dates: start: 20070719, end: 2014

REACTIONS (11)
  - Hypotension [Recovered/Resolved]
  - Diverticulum [Not Recovered/Not Resolved]
  - Irritable bowel syndrome [Not Recovered/Not Resolved]
  - Hiatus hernia [Unknown]
  - Gastrooesophageal reflux disease [Unknown]
  - Clostridium difficile colitis [Recovered/Resolved]
  - Coeliac disease [Recovered/Resolved]
  - Sprue-like enteropathy [Recovered/Resolved]
  - Intestinal obstruction [Recovered/Resolved]
  - Occult blood positive [Unknown]
  - Polyp [Recovered/Resolved]

NARRATIVE: CASE EVENT DATE: 20080512
